FAERS Safety Report 9672328 (Version 1)
Quarter: 2013Q4

REPORT INFORMATION
  Report Type: Spontaneous
  Country: MX (occurrence: MX)
  Receive Date: 20131106
  Receipt Date: 20131106
  Transmission Date: 20140711
  Serious: Yes (Life-Threatening)
  Sender: FDA-Public Use
  Company Number: MX-ELI_LILLY_AND_COMPANY-MX201311000343

PATIENT
  Age: 0 Day
  Sex: Female

DRUGS (5)
  1. HUMALOG LISPRO [Suspect]
     Indication: PRODUCT USED FOR UNKNOWN INDICATION
     Dosage: UNK
     Route: 064
     Dates: start: 20130904
  2. FOLIC ACID [Concomitant]
     Dosage: UNK
     Route: 064
  3. FERROUS FUMARATE [Concomitant]
     Dosage: UNK
     Route: 064
  4. ACARBOSE [Concomitant]
     Dosage: UNK
     Route: 064
  5. CEFOTAXIME [Concomitant]
     Dosage: UNK
     Route: 064

REACTIONS (2)
  - Influenza like illness [Unknown]
  - Foetal exposure during pregnancy [Recovered/Resolved]
